FAERS Safety Report 4940450-8 (Version None)
Quarter: 2006Q1

REPORT INFORMATION
  Report Type: 
  Country: None (occurrence: None)
  Receive Date: 20060131
  Receipt Date: 20051031
  Transmission Date: 20060701
  Serious: No
  Sender: FDA-Public Use
  Company Number: 200519217US

PATIENT
  Age: 91 Year
  Sex: Female

DRUGS (4)
  1. KETEK [Suspect]
     Indication: COUGH
     Dosage: 800 MG PO
     Route: 048
     Dates: start: 20051025, end: 20051030
  2. DIOVAN [Concomitant]
  3. DONEPEZIL HCL [Concomitant]
  4. TEMAZEPAM (RESTORIL) [Concomitant]

REACTIONS (2)
  - AGITATION [None]
  - RASH [None]
